FAERS Safety Report 5096694-0 (Version None)
Quarter: 2006Q3

REPORT INFORMATION
  Report Type: 
  Country: None (occurrence: None)
  Receive Date: 20060831
  Receipt Date: 20060822
  Transmission Date: 20061208
  Serious: Yes (Hospitalization, Other)
  Sender: FDA-Public Use
  Company Number: 2006-DE-04414GD

PATIENT
  Age: 21 Year
  Sex: Female

DRUGS (4)
  1. PREDNISONE TAB [Suspect]
     Indication: POLYMYOSITIS
     Dosage: SEE IMAGE
  2. METHOTREXATE [Suspect]
     Indication: POLYMYOSITIS
     Dosage: 30 MG/WEEK
  3. AZATHIOPRINE [Suspect]
     Indication: POLYMYOSITIS
     Dosage: 150 MG
  4. INTRAVENOUS IMMUNOGLOBULINS (IMMUNOGLOBULINS) [Concomitant]

REACTIONS (2)
  - CONDITION AGGRAVATED [None]
  - CUTANEOUS LEISHMANIASIS [None]
